FAERS Safety Report 4685901-1 (Version None)
Quarter: 2005Q2

REPORT INFORMATION
  Report Type: 
  Country: None (occurrence: None)
  Receive Date: 20050609
  Receipt Date: 20050602
  Transmission Date: 20051028
  Serious: Yes (Other)
  Sender: FDA-Public Use
  Company Number: US-KINGPHARMUSA00001-K200500746

PATIENT
  Sex: Male

DRUGS (1)
  1. ALTACE [Suspect]

REACTIONS (1)
  - SARCOIDOSIS [None]
